FAERS Safety Report 7497642-6 (Version None)
Quarter: 2011Q2

REPORT INFORMATION
  Report Type: 
  Country: None (occurrence: None)
  Receive Date: 20110523
  Receipt Date: 20110519
  Transmission Date: 20111010
  Serious: Yes (Other)
  Sender: FDA-Public Use
  Company Number: NL-ABBOTT-11P-114-0722408-00

PATIENT
  Sex: Female
  Weight: 63 kg

DRUGS (4)
  1. HUMIRA [Suspect]
     Indication: UVEITIS
     Route: 058
     Dates: start: 20091001, end: 20110503
  2. ETHINYLESTRADIOL/LEVONORGESTREL TABLET 30/150MCG [Concomitant]
     Indication: CONTRACEPTION
  3. PREDNISOLONE [Concomitant]
     Indication: UVEITIS
     Dates: start: 19940101, end: 20091001
  4. HUMIRA [Suspect]
     Dates: start: 20110517

REACTIONS (2)
  - DENTAL PULP DISORDER [None]
  - TOOTH FRACTURE [None]
